FAERS Safety Report 23995711 (Version 1)
Quarter: 2024Q2

REPORT INFORMATION
  Report Type: Spontaneous
  Country: BR (occurrence: BR)
  Receive Date: 20240620
  Receipt Date: 20240620
  Transmission Date: 20240716
  Serious: Yes (Other)
  Sender: FDA-Public Use
  Company Number: BR-002147023-NVSC2023BR109164

PATIENT
  Age: 61 Year
  Sex: Female
  Weight: 72 kg

DRUGS (7)
  1. ANASTROZOLE [Suspect]
     Active Substance: ANASTROZOLE
     Indication: Metastases to liver
     Dosage: 1 DOSAGE FORM, QD (TABLET)
     Route: 048
     Dates: start: 202011
  2. KISQALI [Suspect]
     Active Substance: RIBOCICLIB
     Indication: Metastases to liver
     Dosage: 3 DOSAGE FORM, QD
     Route: 048
     Dates: start: 202011
  3. KISQALI [Suspect]
     Active Substance: RIBOCICLIB
     Indication: Hepatic mass
  4. ESOMEPRAZOLE [Concomitant]
     Active Substance: ESOMEPRAZOLE
     Indication: Abdominal discomfort
     Dosage: 1 DOSAGE FORM, QD (TABLET)
     Route: 048
     Dates: start: 202011
  5. PURAN [Concomitant]
     Active Substance: LEVOTHYROXINE SODIUM
     Indication: Thyroidectomy
     Dosage: 1 DOSAGE FORM, QD
     Route: 048
     Dates: start: 2010
  6. VENLAFAXINE [Concomitant]
     Active Substance: VENLAFAXINE HYDROCHLORIDE
     Indication: Depression
     Dosage: 1 DOSAGE FORM, QD (TABLET)
     Route: 048
     Dates: start: 2018
  7. ZOLPIDEM [Concomitant]
     Active Substance: ZOLPIDEM TARTRATE
     Indication: Somnolence
     Dosage: 1 DOSAGE FORM, QD (TABLET)
     Route: 048
     Dates: start: 2010

REACTIONS (7)
  - Abdominal pain upper [Not Recovered/Not Resolved]
  - Decreased immune responsiveness [Not Recovered/Not Resolved]
  - Pain in extremity [Not Recovered/Not Resolved]
  - Gastrointestinal disorder [Unknown]
  - Vomiting [Unknown]
  - Fatigue [Not Recovered/Not Resolved]
  - Product use in unapproved indication [Unknown]

NARRATIVE: CASE EVENT DATE: 20201101
